FAERS Safety Report 19711745 (Version 1)
Quarter: 2021Q3

REPORT INFORMATION
  Report Type: Spontaneous
  Country: DE (occurrence: DE)
  Receive Date: 20210816
  Receipt Date: 20210816
  Transmission Date: 20211014
  Serious: Yes (Other)
  Sender: FDA-Public Use
  Company Number: NVSC2021DE163463

PATIENT
  Age: 85 Year
  Sex: Male

DRUGS (2)
  1. BEOVU [Suspect]
     Active Substance: BROLUCIZUMAB-DBLL
     Dosage: UNK UNK, ONCE/SINGLE
     Route: 031
     Dates: start: 20210707
  2. BEOVU [Suspect]
     Active Substance: BROLUCIZUMAB-DBLL
     Indication: AGE-RELATED MACULAR DEGENERATION
     Dosage: UNK UNK, ONCE/SINGLE
     Route: 031
     Dates: start: 20210609

REACTIONS (7)
  - Blindness [Unknown]
  - Iritis [Recovered/Resolved]
  - Keratic precipitates [Unknown]
  - Anterior chamber cell [Unknown]
  - Vitritis [Unknown]
  - Retinal disorder [Unknown]
  - Anterior chamber flare [Unknown]

NARRATIVE: CASE EVENT DATE: 20210709
